FAERS Safety Report 22309754 (Version 7)
Quarter: 2023Q4

REPORT INFORMATION
  Report Type: Report from Study
  Country: CN (occurrence: None)
  Receive Date: 20230511
  Receipt Date: 20231122
  Transmission Date: 20240109
  Serious: Yes (Hospitalization)
  Sender: FDA-Public Use
  Company Number: CN-ROCHE-3347411

PATIENT
  Sex: Male

DRUGS (26)
  1. ATEZOLIZUMAB [Suspect]
     Active Substance: ATEZOLIZUMAB
     Indication: Hepatocellular carcinoma
     Route: 041
     Dates: start: 20221226, end: 20221226
  2. ATEZOLIZUMAB [Suspect]
     Active Substance: ATEZOLIZUMAB
     Route: 041
     Dates: start: 20230214, end: 20230214
  3. ATEZOLIZUMAB [Suspect]
     Active Substance: ATEZOLIZUMAB
     Route: 041
     Dates: start: 20230315, end: 20230315
  4. ATEZOLIZUMAB [Suspect]
     Active Substance: ATEZOLIZUMAB
     Route: 041
     Dates: start: 20220905, end: 20220905
  5. ATEZOLIZUMAB [Suspect]
     Active Substance: ATEZOLIZUMAB
     Route: 041
     Dates: start: 20220927, end: 20220927
  6. ATEZOLIZUMAB [Suspect]
     Active Substance: ATEZOLIZUMAB
     Route: 041
     Dates: start: 20221019, end: 20221019
  7. ATEZOLIZUMAB [Suspect]
     Active Substance: ATEZOLIZUMAB
     Route: 041
     Dates: start: 20221109, end: 20221109
  8. ATEZOLIZUMAB [Suspect]
     Active Substance: ATEZOLIZUMAB
     Route: 041
     Dates: start: 20221202, end: 20221202
  9. ATEZOLIZUMAB [Suspect]
     Active Substance: ATEZOLIZUMAB
     Route: 041
     Dates: start: 20230505, end: 20230505
  10. ATEZOLIZUMAB [Suspect]
     Active Substance: ATEZOLIZUMAB
     Route: 041
     Dates: start: 20230721, end: 20230721
  11. BEVACIZUMAB [Suspect]
     Active Substance: BEVACIZUMAB
     Indication: Hepatocellular carcinoma
     Route: 041
     Dates: start: 20220905, end: 20220905
  12. BEVACIZUMAB [Suspect]
     Active Substance: BEVACIZUMAB
     Route: 041
     Dates: start: 20220927, end: 20220927
  13. BEVACIZUMAB [Suspect]
     Active Substance: BEVACIZUMAB
     Route: 041
     Dates: start: 20221019, end: 20221019
  14. BEVACIZUMAB [Suspect]
     Active Substance: BEVACIZUMAB
     Route: 041
     Dates: start: 20221202, end: 20221202
  15. BEVACIZUMAB [Suspect]
     Active Substance: BEVACIZUMAB
     Route: 041
     Dates: start: 20221226, end: 20221226
  16. BEVACIZUMAB [Suspect]
     Active Substance: BEVACIZUMAB
     Route: 041
     Dates: start: 20230214, end: 20230214
  17. BEVACIZUMAB [Suspect]
     Active Substance: BEVACIZUMAB
     Route: 041
     Dates: start: 20230315, end: 20230315
  18. BEVACIZUMAB [Suspect]
     Active Substance: BEVACIZUMAB
     Route: 041
     Dates: start: 20230505, end: 20230505
  19. PANTOPRAZOLE SODIUM [Concomitant]
     Active Substance: PANTOPRAZOLE SODIUM
     Indication: Chronic gastritis
     Dates: start: 20221202
  20. LEUCOGEN (CHINA) [Concomitant]
     Dates: start: 20230215, end: 20230303
  21. LEUCOGEN (CHINA) [Concomitant]
     Dates: start: 20230303, end: 20230312
  22. L-GLUTAMINE AND SODIUM GUALENATE [Concomitant]
     Dates: start: 20230329
  23. BUDESONIDE [Concomitant]
     Active Substance: BUDESONIDE
     Indication: Cough
     Dosage: DOSE: 1 OTHER
     Dates: start: 20230326, end: 20230326
  24. TERBUTALINE SULFATE [Concomitant]
     Active Substance: TERBUTALINE SULFATE
     Indication: Cough
     Dates: start: 20230326, end: 20230326
  25. GUAIFENESIN [Concomitant]
     Active Substance: GUAIFENESIN
     Indication: Cough
     Route: 048
     Dates: start: 20230326, end: 20230329
  26. DEXTROSE\SODIUM CHLORIDE [Concomitant]
     Active Substance: DEXTROSE\SODIUM CHLORIDE
     Indication: Fluid replacement
     Dates: start: 20230323, end: 20230326

REACTIONS (19)
  - Gastrointestinal haemorrhage [Recovered/Resolved]
  - Alanine aminotransferase increased [Recovered/Resolved]
  - Platelet count decreased [Not Recovered/Not Resolved]
  - Blood corticotrophin increased [Recovered/Resolved]
  - Toothache [Recovered/Resolved]
  - Proteinuria [Recovered/Resolved]
  - Hyperglycaemia [Recovered/Resolved]
  - Hypokalaemia [Recovered/Resolved]
  - White blood cell count decreased [Recovered/Resolved]
  - Aspartate aminotransferase increased [Recovered/Resolved]
  - Influenza [Not Recovered/Not Resolved]
  - Anaemia [Not Recovered/Not Resolved]
  - Hypoalbuminaemia [Recovered/Resolved]
  - Blood creatinine increased [Recovered/Resolved]
  - Pyrexia [Recovered/Resolved]
  - Portal hypertensive gastropathy [Not Recovered/Not Resolved]
  - Varices oesophageal [Not Recovered/Not Resolved]
  - Lymphocyte count decreased [Recovered/Resolved]
  - Neutrophil count decreased [Recovered/Resolved]

NARRATIVE: CASE EVENT DATE: 20220926
